FAERS Safety Report 5701290-5 (Version None)
Quarter: 2008Q2

REPORT INFORMATION
  Report Type: 
  Country: None (occurrence: None)
  Receive Date: 20080410
  Receipt Date: 20080326
  Transmission Date: 20081010
  Serious: Yes (Death, Hospitalization)
  Sender: FDA-Public Use
  Company Number: DE-GENENTECH-257493

PATIENT
  Sex: Female

DRUGS (4)
  1. AVASTIN [Suspect]
     Indication: LUNG ADENOCARCINOMA
     Dosage: 450 MG, UNK
     Route: 042
     Dates: start: 20080125, end: 20080215
  2. GEMZAR [Concomitant]
     Indication: LUNG ADENOCARCINOMA
     Dates: start: 20080125
  3. CISPLATIN [Concomitant]
     Indication: LUNG ADENOCARCINOMA
  4. PACLITAXEL [Concomitant]
     Indication: LUNG ADENOCARCINOMA
     Dates: start: 20080125

REACTIONS (3)
  - BRAIN INJURY [None]
  - PNEUMONIA [None]
  - SEPSIS [None]
